FAERS Safety Report 4826100-X (Version None)
Quarter: 2005Q4

REPORT INFORMATION
  Report Type: 
  Country: None (occurrence: None)
  Receive Date: 20051014
  Receipt Date: 20050707
  Transmission Date: 20060501
  Serious: No
  Sender: FDA-Public Use
  Company Number: 2005SP001800

PATIENT
  Age: 84 Year
  Sex: Female
  Weight: 50.8029 kg

DRUGS (6)
  1. LUNESTA [Suspect]
     Indication: INSOMNIA
     Dosage: 1 MG; 1X; ORAL
     Route: 048
     Dates: start: 20050706, end: 20050706
  2. LANOXIN [Concomitant]
  3. ANTIHYPERTENSIVES [Concomitant]
  4. DIURETICS [Concomitant]
  5. ANTI-DIABETICS [Concomitant]
  6. ANTIBIOTICS [Concomitant]

REACTIONS (3)
  - DRUG INEFFECTIVE [None]
  - INSOMNIA [None]
  - NERVOUSNESS [None]
